FAERS Safety Report 25361504 (Version 1)
Quarter: 2025Q2

REPORT INFORMATION
  Report Type: Spontaneous
  Country: CN (occurrence: CN)
  Receive Date: 20250527
  Receipt Date: 20250527
  Transmission Date: 20250717
  Serious: Yes (Other)
  Sender: GILEAD
  Company Number: CN-GILEAD-2025-0713957

PATIENT
  Age: 19 Year
  Sex: Female

DRUGS (1)
  1. TRUVADA [Suspect]
     Active Substance: EMTRICITABINE\TENOFOVIR DISOPROXIL FUMARATE
     Indication: Prophylaxis against HIV infection
     Dosage: UNK, QD
     Route: 065

REACTIONS (14)
  - HIV infection [Unknown]
  - Nausea [Unknown]
  - Dizziness [Unknown]
  - Appetite disorder [Unknown]
  - Glossodynia [Unknown]
  - Mouth ulceration [Unknown]
  - Pyrexia [Unknown]
  - Hyperhidrosis [Unknown]
  - Feeling cold [Unknown]
  - Musculoskeletal stiffness [Unknown]
  - Fatigue [Unknown]
  - Asthenopia [Unknown]
  - Paraesthesia [Unknown]
  - Product use in unapproved indication [Unknown]

NARRATIVE: CASE EVENT DATE: 20241219
